FAERS Safety Report 9149714 (Version 1)
Quarter: 2013Q1

REPORT INFORMATION
  Report Type: Spontaneous
  Country: GB (occurrence: None)
  Receive Date: 20130131
  Receipt Date: 20130131
  Transmission Date: 20140127
  Serious: Yes (Disabling)
  Sender: FDA-Public Use
  Company Number: CL-467-2013

PATIENT
  Age: 42 Year
  Sex: Male

DRUGS (8)
  1. METRONIDAZOLE UNK [Suspect]
     Indication: PILONIDAL CYST
     Route: 048
     Dates: start: 20130108, end: 20130109
  2. CIPROFLOXACIN [Suspect]
     Indication: PILONIDAL CYST
     Route: 048
     Dates: start: 20130108, end: 20130108
  3. PARACETAMOL [Concomitant]
  4. CODEINE PHOSPHATE [Concomitant]
  5. ERYTHROMYCIN [Concomitant]
  6. IBUPROFEN [Concomitant]
  7. MORPHINE [Concomitant]
  8. TRAMADOL [Concomitant]

REACTIONS (2)
  - Vertigo [None]
  - Deafness bilateral [None]
